FAERS Safety Report 22357262 (Version 1)
Quarter: 2023Q2

REPORT INFORMATION
  Report Type: Spontaneous
  Country: US (occurrence: US)
  Receive Date: 20230524
  Receipt Date: 20230524
  Transmission Date: 20230721
  Serious: Yes (Hospitalization, Other)
  Sender: FDA-Public Use
  Company Number: US-AMGEN-USASP2023086122

PATIENT
  Age: 69 Year
  Sex: Female

DRUGS (1)
  1. OTEZLA [Suspect]
     Active Substance: APREMILAST
     Indication: Psoriasis
     Dosage: UNK
     Route: 065
     Dates: start: 2021, end: 2021

REACTIONS (3)
  - Neoplasm malignant [Recovering/Resolving]
  - Pulmonary thrombosis [Recovering/Resolving]
  - Thrombotic stroke [Recovering/Resolving]

NARRATIVE: CASE EVENT DATE: 20210101
